FAERS Safety Report 17511331 (Version 1)
Quarter: 2020Q1

REPORT INFORMATION
  Report Type: Spontaneous
  Country: US (occurrence: US)
  Receive Date: 20200306
  Receipt Date: 20200306
  Transmission Date: 20200409
  Serious: No
  Sender: FDA-Public Use
  Company Number: US-ASTRAZENECA-2020SE20810

PATIENT
  Sex: Female
  Weight: 117.9 kg

DRUGS (6)
  1. HYDROCHLORITHIAZIDE HCTZ [Concomitant]
     Indication: HYPOTHYROIDISM
     Route: 048
  2. LOVASTATIN. [Concomitant]
     Active Substance: LOVASTATIN
     Indication: HYPOTHYROIDISM
     Route: 048
  3. ATORVASTATIN [Concomitant]
     Active Substance: ATORVASTATIN
     Indication: BLOOD CHOLESTEROL INCREASED
     Route: 048
     Dates: start: 201912
  4. BYDUREON [Suspect]
     Active Substance: EXENATIDE
     Indication: TYPE 2 DIABETES MELLITUS
     Route: 058
  5. LIOTHYRONINE-CYTOMEL [Concomitant]
     Indication: HYPERMETABOLISM
     Route: 048
  6. LEVOTHYROXINE. [Concomitant]
     Active Substance: LEVOTHYROXINE
     Indication: HYPOTHYROIDISM
     Route: 048

REACTIONS (10)
  - Injection site swelling [Recovering/Resolving]
  - Injection site discolouration [Unknown]
  - Skin sensitisation [Not Recovered/Not Resolved]
  - Injection site mass [Not Recovered/Not Resolved]
  - Urticaria [Recovering/Resolving]
  - Constipation [Not Recovered/Not Resolved]
  - Blood glucose fluctuation [Unknown]
  - Skin warm [Not Recovered/Not Resolved]
  - Vomiting [Recovered/Resolved]
  - Abdominal pain [Unknown]
